FAERS Safety Report 4966298-6 (Version None)
Quarter: 2006Q1

REPORT INFORMATION
  Report Type: 
  Country: None (occurrence: None)
  Receive Date: 20060201
  Receipt Date: 20051117
  Transmission Date: 20060701
  Serious: No
  Sender: FDA-Public Use
  Company Number: 2005PV005151

PATIENT
  Age: 39 Year
  Sex: Male
  Weight: 114.76 kg

DRUGS (5)
  1. BYETTA [Suspect]
     Indication: DIABETES MELLITUS NON-INSULIN-DEPENDENT
     Dosage: 5 MCG;BID;SC
     Route: 058
     Dates: start: 20051022, end: 20051111
  2. METFORMIN [Concomitant]
  3. TRICOR [Concomitant]
  4. DIHYDROTACHYSTEROL [Concomitant]
  5. CALCITREL [Concomitant]

REACTIONS (3)
  - FLUSHING [None]
  - HOT FLUSH [None]
  - WEIGHT DECREASED [None]
